FAERS Safety Report 8360960-3 (Version None)
Quarter: 2012Q2

REPORT INFORMATION
  Report Type: 
  Country: None (occurrence: None)
  Receive Date: 20120515
  Receipt Date: 20120509
  Transmission Date: 20120825
  Serious: Yes (Other)
  Sender: FDA-Public Use
  Company Number: DE-ROCHE-1046408

PATIENT
  Sex: Female
  Weight: 89 kg

DRUGS (13)
  1. RISEDRONIC ACID [Concomitant]
  2. XELODA [Suspect]
     Dates: start: 20120210, end: 20120215
  3. XELODA [Suspect]
     Dosage: ON AN UNKNOWN DATE, THERAPY WAS RESTARTED
  4. METFORMIN HCL [Concomitant]
  5. TRIAMTERENE [Concomitant]
  6. GLUCOBAY [Concomitant]
  7. ACC 600 [Concomitant]
  8. RAMIPRIL [Concomitant]
  9. EFEROX [Concomitant]
  10. IBUPROFEN [Concomitant]
  11. XELODA [Suspect]
     Indication: BREAST CANCER METASTATIC
     Dosage: DOSE INTERRUPTED
     Route: 048
     Dates: start: 20120120
  12. GLIBENHEXAL [Concomitant]
  13. VERAPAMIL [Concomitant]

REACTIONS (3)
  - SWOLLEN TONGUE [None]
  - LIP SWELLING [None]
  - HYPERSENSITIVITY [None]
